FAERS Safety Report 4873301-0 (Version None)
Quarter: 2006Q1

REPORT INFORMATION
  Report Type: 
  Country: None (occurrence: None)
  Receive Date: 20060105
  Receipt Date: 20051018
  Transmission Date: 20060701
  Serious: Yes (Other)
  Sender: FDA-Public Use
  Company Number: US-SANOFI-SYNTHELABO-A03200503339

PATIENT
  Sex: Female
  Weight: 45.8 kg

DRUGS (1)
  1. AMBIEN [Suspect]
     Indication: INSOMNIA
     Route: 048
     Dates: start: 20051011, end: 20051013

REACTIONS (7)
  - DIZZINESS [None]
  - DRUG INEFFECTIVE [None]
  - INCREASED UPPER AIRWAY SECRETION [None]
  - PHARYNGEAL OEDEMA [None]
  - PRURITUS [None]
  - RESTLESSNESS [None]
  - SOMNOLENCE [None]
